FAERS Safety Report 6684579-5 (Version None)
Quarter: 2010Q2

REPORT INFORMATION
  Report Type: 
  Country: None (occurrence: None)
  Receive Date: 20100416
  Receipt Date: 20100412
  Transmission Date: 20101027
  Serious: Yes (Disabling)
  Sender: FDA-Public Use
  Company Number: FR-ROCHE-697053

PATIENT
  Sex: Female

DRUGS (7)
  1. HERCEPTIN [Suspect]
     Indication: BREAST CANCER
     Dosage: NO RECHALLENGE WAS PERFORMED
     Route: 042
     Dates: start: 20080201, end: 20080801
  2. TAXOTERE [Suspect]
     Indication: BREAST CANCER
     Dosage: NO RECHALLENGE WAS PERFORMED.
     Route: 042
     Dates: start: 20080201, end: 20080401
  3. FLUOROURACIL [Suspect]
     Indication: BREAST CANCER
     Dosage: NO RECHALLENGE WAS PERFORMED.
     Route: 042
     Dates: start: 20071201, end: 20080201
  4. EPIRUBICIN [Suspect]
     Indication: BREAST CANCER
     Dosage: NO RECHALLENGE WAS PERFORMED.
     Route: 042
     Dates: start: 20071201, end: 20080201
  5. ENDOXAN [Suspect]
     Indication: BREAST CANCER
     Dosage: NO RECHALLENGE WAS PERFORMED
     Route: 042
     Dates: start: 20071201, end: 20080201
  6. FEMARA [Concomitant]
     Indication: BREAST CANCER
     Dosage: COATED TABLET.
     Route: 048
     Dates: start: 20070901
  7. LEVOTHYROX [Concomitant]
     Indication: HYPOTHYROIDISM
     Route: 048

REACTIONS (1)
  - ALOPECIA [None]
